FAERS Safety Report 10220997 (Version 2)
Quarter: 2014Q2

REPORT INFORMATION
  Report Type: Spontaneous
  Country: JP (occurrence: JP)
  Receive Date: 20140606
  Receipt Date: 20140620
  Transmission Date: 20141212
  Serious: Yes (Hospitalization)
  Sender: FDA-Public Use
  Company Number: JP-JNJFOC-20140516710

PATIENT
  Age: 40 Year
  Sex: Female

DRUGS (1)
  1. ORTHO M 21 [Suspect]
     Indication: UTERINE LEIOMYOMA
     Route: 048

REACTIONS (4)
  - Pulmonary embolism [Unknown]
  - Metrorrhagia [Unknown]
  - Treatment noncompliance [Unknown]
  - Off label use [Unknown]
